FAERS Safety Report 5128244-4 (Version None)
Quarter: 2006Q4

REPORT INFORMATION
  Report Type: 
  Country: None (occurrence: None)
  Receive Date: 20061011
  Receipt Date: 20060912
  Transmission Date: 20070319
  Serious: Yes (Hospitalization)
  Sender: FDA-Public Use
  Company Number: 2006-08-0626

PATIENT
  Age: 57 Year
  Sex: Female
  Weight: 52 kg

DRUGS (6)
  1. PEG-INTRON [Suspect]
     Indication: HEPATITIS C
     Dosage: 80 MCG; QW; SC
     Route: 058
     Dates: start: 20060725, end: 20060801
  2. REBETOL [Suspect]
     Indication: HEPATITIS C
     Dosage: 600 MG; QD;PO
     Route: 048
     Dates: start: 20060725, end: 20060809
  3. EMEDASTINE DIFUMARTATE [Suspect]
     Indication: DRUG USE FOR UNKNOWN INDICATION
     Dates: start: 20060801, end: 20060809
  4. THYRADIN S [Concomitant]
  5. AMOBAN [Concomitant]
  6. VOLTAREN [Concomitant]

REACTIONS (12)
  - BLOOD PRESSURE IMMEASURABLE [None]
  - ERYTHEMA [None]
  - INJECTION SITE ERYTHEMA [None]
  - INJECTION SITE SWELLING [None]
  - LOSS OF CONSCIOUSNESS [None]
  - MALAISE [None]
  - NAUSEA [None]
  - PALLOR [None]
  - PULSE PRESSURE DECREASED [None]
  - SHOCK [None]
  - SOMNOLENCE [None]
  - VOMITING [None]
